FAERS Safety Report 4508126-9 (Version None)
Quarter: 2004Q4

REPORT INFORMATION
  Report Type: 
  Country: None (occurrence: None)
  Receive Date: 20041123
  Receipt Date: 20031021
  Transmission Date: 20050328
  Serious: No
  Sender: FDA-Public Use
  Company Number: US-GLAXOSMITHKLINE-A0430986A

PATIENT
  Sex: Female

DRUGS (4)
  1. WELLBUTRIN [Suspect]
     Indication: DEPRESSION
     Dosage: 150MG PER DAY
     Route: 048
  2. LEXAPRO [Concomitant]
  3. GLUCOVANCE [Concomitant]
  4. BENICAR [Concomitant]

REACTIONS (4)
  - AGITATION [None]
  - ANXIETY [None]
  - DIZZINESS [None]
  - NERVOUSNESS [None]
